FAERS Safety Report 18683494 (Version 1)
Quarter: 2020Q4

REPORT INFORMATION
  Report Type: Report from Study
  Country: ES (occurrence: ES)
  Receive Date: 20201230
  Receipt Date: 20201230
  Transmission Date: 20210114
  Serious: Yes (Other)
  Sender: FDA-Public Use
  Company Number: ES-GLAXOSMITHKLINE-ES2020254513

PATIENT
  Age: 42 Year
  Sex: Female

DRUGS (1)
  1. BELIMUMAB [Suspect]
     Active Substance: BELIMUMAB
     Indication: SYSTEMIC LUPUS ERYTHEMATOSUS
     Dosage: 930 MG (930 MG / 4 WEEKS)
     Route: 042
     Dates: start: 20190902

REACTIONS (1)
  - Cervix carcinoma stage I [Recovering/Resolving]

NARRATIVE: CASE EVENT DATE: 20200423
